FAERS Safety Report 4353122-8 (Version None)
Quarter: 2004Q2

REPORT INFORMATION
  Report Type: 
  Country: None (occurrence: None)
  Receive Date: 20040430
  Receipt Date: 20040205
  Transmission Date: 20050107
  Serious: No
  Sender: FDA-Public Use
  Company Number: 204548

PATIENT
  Age: 43 Year
  Sex: Male
  Weight: 79.4 kg

DRUGS (6)
  1. XOLAIR [Suspect]
     Indication: ASTHMA
     Dosage: 300 MG Q4W SUBCUTANEOUS
     Route: 058
     Dates: start: 20031208
  2. NEXIUM [Concomitant]
  3. ADVAIR (SALMETEROL XINAFOATE, FLUTICASONE PROPIONATE) [Concomitant]
  4. NASONEX [Concomitant]
  5. NORVASC [Concomitant]
  6. PREVACID [Concomitant]

REACTIONS (1)
  - FATIGUE [None]
